FAERS Safety Report 4805730-5 (Version None)
Quarter: 2005Q4

REPORT INFORMATION
  Report Type: 
  Country: None (occurrence: None)
  Receive Date: 20051021
  Receipt Date: 20050824
  Transmission Date: 20060501
  Serious: Yes (Death, Hospitalization)
  Sender: FDA-Public Use
  Company Number: 200517547GDDC

PATIENT
  Age: 59 Year
  Sex: Male

DRUGS (4)
  1. NASACORT [Suspect]
     Indication: SEASONAL ALLERGY
     Route: 045
  2. DOSTINEX [Suspect]
     Indication: PROLACTINOMA
     Route: 048
  3. CORTISONE ACETATE TAB [Concomitant]
  4. THYROXINE [Concomitant]
     Dates: start: 20010101

REACTIONS (4)
  - DRUG INTERACTION [None]
  - INJURY [None]
  - POLYTRAUMATISM [None]
  - ROAD TRAFFIC ACCIDENT [None]
